FAERS Safety Report 12250077 (Version 1)
Quarter: 2016Q2

REPORT INFORMATION
  Report Type: Spontaneous
  Country: US (occurrence: US)
  Receive Date: 20160408
  Receipt Date: 20160408
  Transmission Date: 20160815
  Serious: Yes (Other)
  Sender: FDA-Public Use
  Company Number: US-FRI-1000083745

PATIENT
  Sex: Male

DRUGS (2)
  1. COLISTIN [Suspect]
     Active Substance: COLISTIN
     Indication: URINARY TRACT INFECTION PSEUDOMONAL
  2. AVYCAZ [Suspect]
     Active Substance: AVIBACTAM SODIUM\CEFTAZIDIME
     Indication: URINARY TRACT INFECTION PSEUDOMONAL
     Route: 042
     Dates: start: 2016, end: 2016

REACTIONS (2)
  - Encephalopathy [Recovered/Resolved]
  - Delirium [Recovered/Resolved]

NARRATIVE: CASE EVENT DATE: 2016
